FAERS Safety Report 8803444 (Version 2)
Quarter: 2012Q4

REPORT INFORMATION
  Report Type: Report from Study
  Country: JP (occurrence: JP)
  Receive Date: 20120924
  Receipt Date: 20121005
  Transmission Date: 20130627
  Serious: Yes (Hospitalization, Other)
  Sender: FDA-Public Use
  Company Number: JP-MPIJNJ-2012-06503

PATIENT

DRUGS (6)
  1. VELCADE [Suspect]
     Indication: MULTIPLE MYELOMA
     Dosage: 1.3 mg/m2, UNK
     Route: 042
     Dates: start: 20120702, end: 20120702
  2. VELCADE [Suspect]
     Dosage: 1.3 mg/m2, UNK
     Route: 042
     Dates: start: 20120705, end: 20120705
  3. VELCADE [Suspect]
     Dosage: 1.3 mg/m2, UNK
     Route: 042
     Dates: start: 20120709, end: 20120709
  4. VELCADE [Suspect]
     Dosage: 1.3 mg/m2, UNK
     Route: 042
     Dates: start: 20120712, end: 20120712
  5. VELCADE [Suspect]
     Dosage: 1.3 mg/m2, UNK
     Route: 042
     Dates: start: 20120814, end: 20120814
  6. DECADRON [Suspect]
     Indication: MULTIPLE MYELOMA
     Dosage: 6.6 mg, UNK
     Route: 042
     Dates: start: 20120702, end: 20120712

REACTIONS (3)
  - Cytomegalovirus chorioretinitis [Recovered/Resolved]
  - Neuropathy peripheral [Not Recovered/Not Resolved]
  - Demyelinating polyneuropathy [Not Recovered/Not Resolved]
